FAERS Safety Report 7443445-8 (Version None)
Quarter: 2011Q2

REPORT INFORMATION
  Report Type: 
  Country: None (occurrence: None)
  Receive Date: 20110428
  Receipt Date: 20110413
  Transmission Date: 20111010
  Serious: Yes (Death, Hospitalization, Other)
  Sender: FDA-Public Use
  Company Number: JP-BAYER-201014789BYL

PATIENT
  Age: 77 Year
  Sex: Female
  Weight: 43 kg

DRUGS (13)
  1. NESPO [Concomitant]
     Route: 042
  2. KAYTWO N [Concomitant]
     Indication: GASTROINTESTINAL HAEMORRHAGE
     Dosage: UNK
     Route: 041
     Dates: start: 20100802, end: 20100806
  3. ALFA D [Suspect]
     Indication: RENAL FAILURE CHRONIC
     Dosage: 0.25 ?G, QD
     Route: 048
     Dates: end: 20100802
  4. OXAROL [Concomitant]
     Dosage: UNK
     Route: 042
  5. PRIMOBOLAN [Suspect]
     Indication: APLASTIC ANAEMIA
     Dosage: SINCE BEFORE OVER 1 YEAR
     Route: 048
     Dates: end: 20100802
  6. ADONA [Concomitant]
     Indication: GASTROINTESTINAL HAEMORRHAGE
     Dosage: UNK
     Route: 041
     Dates: start: 20100802, end: 20100806
  7. TRANSAMIN [Concomitant]
     Indication: GASTROINTESTINAL HAEMORRHAGE
     Dosage: UNK
     Route: 041
     Dates: start: 20100802, end: 20100806
  8. WARFARIN [Concomitant]
     Dosage: 1 MG, QD
     Route: 048
     Dates: start: 20100823
  9. PROTECADIN [Suspect]
     Indication: GASTRIC ULCER
     Dosage: 10 MG, QD
     Route: 048
     Dates: start: 20080201, end: 20100802
  10. ASPIRIN [Suspect]
     Indication: AORTIC VALVE DISEASE MIXED
     Dosage: 100 MG, QD
     Route: 048
     Dates: start: 20100101, end: 20100802
  11. WARFARIN [Concomitant]
     Dosage: UNK
     Route: 048
     Dates: end: 20100802
  12. NIKORANMART [Concomitant]
     Dosage: UNK
     Route: 048
  13. NIKORANMART [Concomitant]
     Dosage: 5 MG, BID
     Route: 048
     Dates: start: 20100927

REACTIONS (6)
  - HEPATIC FUNCTION ABNORMAL [None]
  - DEPRESSED LEVEL OF CONSCIOUSNESS [None]
  - HEPATITIS ACUTE [None]
  - DIALYSIS [None]
  - BLOOD POTASSIUM INCREASED [None]
  - GASTROINTESTINAL HAEMORRHAGE [None]
